FAERS Safety Report 7540443-0 (Version None)
Quarter: 2011Q2

REPORT INFORMATION
  Report Type: 
  Country: None (occurrence: None)
  Receive Date: 20110603
  Receipt Date: 20110518
  Transmission Date: 20111010
  Serious: Yes (Hospitalization, Other)
  Sender: FDA-Public Use
  Company Number: 2011MA006144

PATIENT
  Age: 32 Year
  Sex: Male

DRUGS (1)
  1. MINOXIDIL EXTRA STRENGTH (FOR MEN) [Suspect]
     Indication: HYPERTENSION
     Dates: start: 20070101

REACTIONS (8)
  - CARDIAC TAMPONADE [None]
  - ABDOMINAL PAIN [None]
  - PERIPORTAL OEDEMA [None]
  - CARDIOMEGALY [None]
  - BLOOD PRESSURE INCREASED [None]
  - PERICARDIAL EFFUSION [None]
  - HEART SOUNDS ABNORMAL [None]
  - INGUINAL HERNIA [None]
